FAERS Safety Report 17654766 (Version 1)
Quarter: 2020Q2

REPORT INFORMATION
  Report Type: Spontaneous
  Country: US (occurrence: US)
  Receive Date: 20200410
  Receipt Date: 20200410
  Transmission Date: 20200713
  Serious: No
  Sender: FDA-Public Use
  Company Number: US-TEVA-2020-US-1219817

PATIENT
  Sex: Male

DRUGS (1)
  1. GLIPIZIDE ACTAVIS [Suspect]
     Active Substance: GLIPIZIDE
     Route: 065

REACTIONS (1)
  - Blood blister [Unknown]
